FAERS Safety Report 4692892-6 (Version None)
Quarter: 2005Q2

REPORT INFORMATION
  Report Type: 
  Country: None (occurrence: None)
  Receive Date: 20050615
  Receipt Date: 20050601
  Transmission Date: 20051028
  Serious: Yes (Hospitalization)
  Sender: FDA-Public Use
  Company Number: US_0506118260

PATIENT
  Age: 72 Year
  Sex: Male

DRUGS (1)
  1. XIGRIS [Suspect]
     Indication: SURGERY

REACTIONS (1)
  - ISCHAEMIC STROKE [None]
